FAERS Safety Report 15347010 (Version 2)
Quarter: 2018Q3

REPORT INFORMATION
  Report Type: Report from Study
  Country: IL (occurrence: IL)
  Receive Date: 20180904
  Receipt Date: 20180906
  Transmission Date: 20181010
  Serious: Yes (Death)
  Sender: FDA-Public Use
  Company Number: PHHY2018IL086746

PATIENT
  Age: 49 Year
  Sex: Female

DRUGS (1)
  1. SANDOSTATIN LAR DEPOT [Suspect]
     Active Substance: OCTREOTIDE ACETATE
     Indication: INTESTINAL OBSTRUCTION
     Dosage: 30 MG, UNK
     Route: 058
     Dates: start: 20180816

REACTIONS (4)
  - Product use in unapproved indication [Unknown]
  - Concomitant disease aggravated [Fatal]
  - Incorrect route of drug administration [Unknown]
  - Peripheral artery thrombosis [Fatal]
